FAERS Safety Report 5689598-3 (Version None)
Quarter: 2008Q1

REPORT INFORMATION
  Report Type: 
  Country: None (occurrence: None)
  Receive Date: 20080331
  Receipt Date: 20080325
  Transmission Date: 20080703
  Serious: Yes (Hospitalization)
  Sender: FDA-Public Use
  Company Number: TR-BOEHRINGER INGELHEIM GMBH, GERMANY-2008-BP-04834RO

PATIENT
  Age: 2 Year
  Sex: Male

DRUGS (21)
  1. CYCLOPHOSPHAMIDE [Suspect]
     Indication: RHABDOMYOSARCOMA
  2. CYCLOPHOSPHAMIDE [Suspect]
  3. CYCLOPHOSPHAMIDE [Suspect]
  4. VINCRISTINE [Suspect]
     Indication: RHABDOMYOSARCOMA
  5. DACTINOMYCIN [Suspect]
     Indication: RHABDOMYOSARCOMA
  6. DACTINOMYCIN [Suspect]
  7. CEFEPIME [Concomitant]
     Indication: EVIDENCE BASED TREATMENT
  8. AMIKACIN [Concomitant]
     Indication: EVIDENCE BASED TREATMENT
  9. TEICOPLANIN [Concomitant]
     Indication: EVIDENCE BASED TREATMENT
  10. FLUCONAZOLE [Concomitant]
     Indication: STOMATITIS
     Route: 042
  11. FLUCONAZOLE [Concomitant]
     Indication: DIARRHOEA
  12. METRONIDAZOLE HCL [Concomitant]
     Indication: DIARRHOEA
     Route: 042
  13. METRONIDAZOLE HCL [Concomitant]
  14. SPIRONOLACTONE [Concomitant]
     Indication: WEIGHT INCREASED
     Route: 051
  15. VITAMIN K1 [Concomitant]
     Indication: WEIGHT INCREASED
     Route: 051
  16. IMIPENEM [Concomitant]
     Indication: FEBRILE NEUTROPENIA
  17. IMIPENEM [Concomitant]
     Indication: AGRANULOCYTOSIS
  18. AMPHOTERICIN B [Concomitant]
     Indication: EVIDENCE BASED TREATMENT
  19. NEUPOGEN [Concomitant]
     Indication: FEBRILE NEUTROPENIA
  20. SODIUM CHLORIDE 0.9% [Concomitant]
     Indication: ORAL INTAKE REDUCED
     Route: 042
  21. DEXTROSE [Concomitant]
     Indication: ORAL INTAKE REDUCED
     Route: 042

REACTIONS (3)
  - BONE MARROW FAILURE [None]
  - FEBRILE NEUTROPENIA [None]
  - VENOOCCLUSIVE DISEASE [None]
